FAERS Safety Report 7520971-4 (Version None)
Quarter: 2011Q2

REPORT INFORMATION
  Report Type: 
  Country: None (occurrence: None)
  Receive Date: 20110603
  Receipt Date: 20100615
  Transmission Date: 20111010
  Serious: Yes (Hospitalization, Other)
  Sender: FDA-Public Use
  Company Number: US-BAYER-200941035NA

PATIENT
  Age: 28 Year
  Sex: Female
  Weight: 78.636 kg

DRUGS (5)
  1. YASMIN [Suspect]
     Dosage: UNK UNK, QD
     Route: 048
     Dates: start: 20060831, end: 20070522
  2. YASMIN [Suspect]
     Dosage: UNK
     Dates: start: 20070911
  3. GLUCOPHAGE [Concomitant]
     Indication: POLYCYSTIC OVARIES
     Dates: start: 20070601
  4. SPIRONOLACTONE [Concomitant]
     Indication: POLYCYSTIC OVARIES
     Dates: start: 20080601
  5. METFORMIN HCL [Concomitant]
     Indication: POLYCYSTIC OVARIES
     Dates: start: 20060301

REACTIONS (4)
  - PAIN IN EXTREMITY [None]
  - DEEP VEIN THROMBOSIS [None]
  - ERYTHEMA [None]
  - OEDEMA PERIPHERAL [None]
